FAERS Safety Report 6998535-0 (Version None)
Quarter: 2010Q3

REPORT INFORMATION
  Report Type: 
  Country: None (occurrence: None)
  Receive Date: 20100920
  Receipt Date: 20100113
  Transmission Date: 20110219
  Serious: Yes (Hospitalization, Other)
  Sender: FDA-Public Use
  Company Number: US-ASTRAZENECA-2006UW12295

PATIENT
  Sex: Male
  Weight: 104.4 kg

DRUGS (8)
  1. SEROQUEL [Suspect]
     Route: 048
     Dates: start: 20040502
  2. ZYPREXA [Suspect]
     Dosage: 10 MG, 25 MG
     Dates: start: 20020101
  3. RISPERDAL [Concomitant]
  4. TRAZODONE HCL [Concomitant]
     Route: 048
     Dates: start: 20031209
  5. REMERON [Concomitant]
     Dates: start: 20020921
  6. LANTUS [Concomitant]
     Dosage: 24 UNITS QHS
     Route: 058
     Dates: start: 20031209
  7. HUMALOG [Concomitant]
     Dosage: 9 UNITS BID
     Route: 058
     Dates: start: 20031209
  8. ATIVAN [Concomitant]
     Route: 048
     Dates: start: 20040501

REACTIONS (3)
  - DIABETES MELLITUS [None]
  - DIABETIC KETOACIDOSIS [None]
  - HYPERGLYCAEMIA [None]
